FAERS Safety Report 4373015-X (Version None)
Quarter: 2004Q2

REPORT INFORMATION
  Report Type: 
  Country: None (occurrence: None)
  Receive Date: 20040608
  Receipt Date: 20040601
  Transmission Date: 20050107
  Serious: Yes (Other)
  Sender: FDA-Public Use
  Company Number: AT-ROCHE-369578

PATIENT
  Sex: Female

DRUGS (2)
  1. ROACCUTAN [Suspect]
     Indication: ACNE
     Route: 048
     Dates: start: 20021115, end: 20021215
  2. ROACCUTAN [Suspect]
     Dosage: DOSE LOWERED.
     Route: 048
     Dates: start: 20021215, end: 20030315

REACTIONS (4)
  - ARTHRALGIA [None]
  - COMPARTMENT SYNDROME [None]
  - PERIOSTITIS [None]
  - TENDONITIS [None]
